FAERS Safety Report 23709205 (Version 1)
Quarter: 2024Q2

REPORT INFORMATION
  Report Type: Spontaneous
  Country: US (occurrence: None)
  Receive Date: 20240404
  Receipt Date: 20240404
  Transmission Date: 20240716
  Serious: No
  Sender: FDA-Public Use
  Company Number: None

PATIENT

DRUGS (2)
  1. CARDENE [Suspect]
     Active Substance: NICARDIPINE HYDROCHLORIDE
     Dosage: OTHER FREQUENCY : GALAXY SINGLE DOSE?OTHER ROUTE : PREMIXED INJECTION?
     Route: 050
  2. ALBUMIN HUMAN [Suspect]
     Active Substance: ALBUMIN HUMAN
     Dosage: OTHER FREQUENCY : IV BAG;?
     Route: 042

REACTIONS (6)
  - Drug monitoring procedure incorrectly performed [None]
  - Wrong product administered [None]
  - Infusion site haemorrhage [None]
  - Cardiac arrest [None]
  - Product label issue [None]
  - Product packaging issue [None]
